FAERS Safety Report 6823674-4 (Version None)
Quarter: 2010Q3

REPORT INFORMATION
  Report Type: 
  Country: None (occurrence: None)
  Receive Date: 20100708
  Receipt Date: 20060831
  Transmission Date: 20110219
  Serious: No
  Sender: FDA-Public Use
  Company Number: US-PFIZER INC-2006109048

PATIENT
  Sex: Female
  Weight: 54.43 kg

DRUGS (4)
  1. CHANTIX [Suspect]
     Indication: SMOKING CESSATION THERAPY
     Dates: start: 20060825
  2. AMOXICILLIN [Interacting]
     Indication: TOOTH ABSCESS
     Dates: start: 20060828
  3. ALL OTHER THERAPEUTIC PRODUCTS [Concomitant]
     Indication: BLOOD PRESSURE MANAGEMENT
  4. ZOCOR [Concomitant]

REACTIONS (4)
  - DRUG INEFFECTIVE [None]
  - DRUG INTERACTION [None]
  - SWELLING FACE [None]
  - TOOTH ABSCESS [None]
